FAERS Safety Report 7815327-0 (Version None)
Quarter: 2011Q4

REPORT INFORMATION
  Report Type: 
  Country: None (occurrence: None)
  Receive Date: 20111014
  Receipt Date: 20111011
  Transmission Date: 20120403
  Serious: No
  Sender: FDA-Public Use
  Company Number: US-PFIZER INC-2011158476

PATIENT
  Age: 69 Year
  Sex: Male
  Weight: 82 kg

DRUGS (19)
  1. CHANTIX [Suspect]
     Indication: SMOKING CESSATION THERAPY
     Dosage: 0.5 MG, 1X/DAY
     Route: 048
     Dates: start: 20110701, end: 20110703
  2. ACETYLSALICYLIC ACID [Concomitant]
     Indication: CARDIAC DISORDER
     Dosage: 81 MG, 1X/DAY, DAILY
  3. ENALAPRIL [Concomitant]
     Indication: CARDIAC DISORDER
     Dosage: 20 MG, 1X/DAY, DAILY
  4. THIAMINE [Concomitant]
     Indication: CARDIAC DISORDER
     Dosage: 100 MG, UNK
  5. SIMVASTATIN [Concomitant]
     Indication: DIABETES MELLITUS
     Dosage: 40 MG, 1X/DAY
  6. MIRALAX [Concomitant]
     Dosage: UNK, 1/2 CAPFULL 1-2 DAYS PRN
  7. TRIAMTERENE AND HYDROCHLOROTHIAZIDE [Concomitant]
     Indication: ANTICOAGULANT THERAPY
     Dosage: 75/50MG,  1X/DAY
  8. METFORMIN [Concomitant]
     Dosage: 500 MG, 1X/DAY
  9. TRAMADOL [Concomitant]
     Dosage: 50 MG, UNK (1.2 DAILY AS NEEDED)
  10. CHANTIX [Suspect]
     Dosage: UNK
     Route: 048
     Dates: start: 20110711, end: 20110711
  11. ALLOPURINOL [Concomitant]
     Indication: GOUT
     Dosage: 100 MG, 1X/DAY
  12. DIGOXIN [Concomitant]
     Dosage: 0.25 MG, 1X/DAY
  13. VERAPAMIL [Concomitant]
     Dosage: 80 MG, 1X/DAY
  14. SPIRIVA [Concomitant]
     Dosage: 18 UG, 1X/DAY (PRN)
  15. ALEVE [Concomitant]
     Dosage: UNK, 1X/DAY
  16. PLAVIX [Concomitant]
     Indication: CARDIAC DISORDER
     Dosage: 75 MG, 1X/DAY, DAILY
  17. DIGOXIN [Concomitant]
     Dosage: 25 MG, 1X/DAY
  18. CHANTIX [Suspect]
     Dosage: 0.5 MG, 2X/DAY
     Route: 048
     Dates: start: 20110704, end: 20110704
  19. CARDIZEM [Concomitant]
     Dosage: 60 MG, 1X/DAY

REACTIONS (14)
  - VOMITING [None]
  - NAUSEA [None]
  - POLLAKIURIA [None]
  - CONSTIPATION [None]
  - BEDRIDDEN [None]
  - HYPERTENSION [None]
  - COUGH [None]
  - MUSCULAR WEAKNESS [None]
  - BLOOD GLUCOSE INCREASED [None]
  - TOTAL CHOLESTEROL/HDL RATIO ABNORMAL [None]
  - SINUS DISORDER [None]
  - DECREASED APPETITE [None]
  - MALAISE [None]
  - WEIGHT DECREASED [None]
